FAERS Safety Report 23625587 (Version 5)
Quarter: 2024Q2

REPORT INFORMATION
  Report Type: Spontaneous
  Country: FR (occurrence: FR)
  Receive Date: 20240313
  Receipt Date: 20240604
  Transmission Date: 20240716
  Serious: Yes (Death, Other)
  Sender: FDA-Public Use
  Company Number: FR-GLAXOSMITHKLINE-FR2024EME031542

PATIENT

DRUGS (7)
  1. NUCALA [Suspect]
     Active Substance: MEPOLIZUMAB
     Indication: Asthma
     Dosage: 100 MG
     Route: 058
     Dates: start: 20240306
  2. SERETIDE [Concomitant]
     Active Substance: FLUTICASONE PROPIONATE\SALMETEROL XINAFOATE
     Indication: Asthma
     Dosage: UNK, QID, 250/25,X4/DAY, ROUTE INHALER
     Route: 055
     Dates: start: 202210, end: 20240306
  3. ALBUTEROL [Concomitant]
     Active Substance: ALBUTEROL
     Indication: Asthma
     Dosage: UNK UNK, TID, 2.5 MG/2 ML, ROUTE SPRAYAROUND 10:30 / SALBUTAMOL 2.5 INHALER
     Dates: start: 20240222, end: 20240306
  4. IPRATROPIUM [Concomitant]
     Active Substance: IPRATROPIUM
     Indication: Asthma
     Dosage: 0.5 MG/ML, TID, 0.5 MG/1 ML, ROUTE SPRAY
     Dates: start: 20240222, end: 20240306
  5. BECLOMETHASONE DIPROPIONATE [Concomitant]
     Active Substance: BECLOMETHASONE DIPROPIONATE
     Indication: Asthma
     Dosage: 800 MG/ML, TID, 800 MG/1 ML, ROUTE-SPRAY
     Dates: start: 20220222, end: 20240306
  6. PREDNISOLONE [Concomitant]
     Active Substance: PREDNISOLONE
     Indication: Asthma
     Dosage: 20 MG
     Dates: start: 20240222, end: 20240306
  7. VENTOLIN [Concomitant]
     Active Substance: ALBUTEROL SULFATE
     Indication: Product used for unknown indication
     Dosage: UNK,100

REACTIONS (3)
  - Cardiac arrest [Fatal]
  - Asphyxia [Fatal]
  - Respiratory distress [Fatal]

NARRATIVE: CASE EVENT DATE: 20240306
